FAERS Safety Report 9134723 (Version 1)
Quarter: 2013Q1

REPORT INFORMATION
  Report Type: Spontaneous
  Country: US (occurrence: None)
  Receive Date: 20130205
  Receipt Date: 20130205
  Transmission Date: 20140127
  Serious: Yes (Hospitalization, Other)
  Sender: FDA-Public Use
  Company Number: USA/USA/13/0027743

PATIENT
  Age: 21 Year
  Sex: Male

DRUGS (2)
  1. RISPERIDONE TABLETS (RISPERIDONE) [Suspect]
     Indication: PSYCHOTIC DISORDER
     Route: 048
  2. RISPERIDONE TABLETS (RISPERIDONE) [Suspect]
     Indication: SCHIZOPHRENIFORM DISORDER
     Route: 048

REACTIONS (2)
  - Priapism [None]
  - Treatment noncompliance [None]
